FAERS Safety Report 5482020-1 (Version None)
Quarter: 2007Q4

REPORT INFORMATION
  Report Type: 
  Country: None (occurrence: None)
  Receive Date: 20071005
  Receipt Date: 20070928
  Transmission Date: 20080405
  Serious: Yes (Other)
  Sender: FDA-Public Use
  Company Number: 2007332026

PATIENT
  Age: 38 Year
  Sex: Male
  Weight: 68 kg

DRUGS (1)
  1. VISINE TEARS (GLYCERIN, POLYETHYLENE GLYCOL, HYDROXYPROPYLMETHYLCELLUL [Suspect]
     Indication: CONTACT LENS THERAPY
     Dosage: 2 DROPS ONCE (2 DROP, 1 IN 1 D), OPHTHALMIC
     Route: 047
     Dates: start: 20070922, end: 20070922

REACTIONS (2)
  - BLINDNESS TRANSIENT [None]
  - EYE SWELLING [None]
